FAERS Safety Report 7257004-3 (Version None)
Quarter: 2011Q1

REPORT INFORMATION
  Report Type: 
  Country: None (occurrence: None)
  Receive Date: 20110129
  Receipt Date: 20100729
  Transmission Date: 20110831
  Serious: No
  Sender: FDA-Public Use
  Company Number: US-ABBOTT-10P-163-0660710-00

PATIENT
  Age: 30 Year
  Sex: Female

DRUGS (7)
  1. VITAMIN B [Concomitant]
     Indication: PRODUCT USED FOR UNKNOWN INDICATION
  2. CLINDAMYCIN [Concomitant]
     Indication: ACNE
     Route: 061
  3. BENZOYL PEROXIDE [Concomitant]
     Indication: ACNE
     Route: 061
  4. PROVIGIL [Concomitant]
     Indication: SLEEP DISORDER
  5. MAGNESIUM [Concomitant]
     Indication: PRODUCT USED FOR UNKNOWN INDICATION
  6. ASPIRIN [Concomitant]
     Indication: PRODUCT USED FOR UNKNOWN INDICATION
  7. HUMIRA [Suspect]
     Indication: CROHN'S DISEASE

REACTIONS (1)
  - ACNE [None]
